FAERS Safety Report 21042171 (Version 7)
Quarter: 2024Q2

REPORT INFORMATION
  Report Type: Report from Study
  Country: US (occurrence: US)
  Receive Date: 20220705
  Receipt Date: 20240611
  Transmission Date: 20240716
  Serious: Yes (Hospitalization, Other)
  Sender: FDA-Public Use
  Company Number: US-NOVARTISPH-NVSC2022US147661

PATIENT
  Age: 77 Year
  Sex: Female
  Weight: 85.4 kg

DRUGS (5)
  1. KISQALI [Suspect]
     Active Substance: RIBOCICLIB
     Indication: Breast cancer
     Dosage: 600 MG, QD (3 WEEKS ON, 1 WEEK OFF)
     Route: 048
     Dates: start: 20220501
  2. KISQALI [Suspect]
     Active Substance: RIBOCICLIB
     Dosage: 600 MG, QD
     Route: 048
     Dates: start: 20220507
  3. FEMARA [Concomitant]
     Active Substance: LETROZOLE
     Indication: Product used for unknown indication
     Dosage: 1 DOSAGE FORM, QD
     Route: 048
     Dates: start: 20220501
  4. FEMARA [Concomitant]
     Active Substance: LETROZOLE
     Dosage: 1 DOSAGE FORM, QD
     Route: 048
     Dates: start: 20220525
  5. ULTRAM [Concomitant]
     Active Substance: TRAMADOL HYDROCHLORIDE
     Indication: Pain
     Dosage: 1 DOSAGE FORM (EVERY SIX HOURS AS NEEDED FOR MODERATE PAIN UPTO 5 DAYS)
     Route: 048
     Dates: start: 20220512, end: 20220517

REACTIONS (13)
  - Respiratory failure [Unknown]
  - Dyspnoea exertional [Unknown]
  - Pleural effusion [Unknown]
  - Malignant pleural effusion [Unknown]
  - Reexpansion pulmonary oedema [Unknown]
  - Hypoxia [Unknown]
  - Catheter site pain [Recovering/Resolving]
  - Pleural fluid analysis abnormal [Unknown]
  - Nasopharyngitis [Unknown]
  - Tumour marker increased [Recovering/Resolving]
  - Pruritus [Unknown]
  - Cough [Unknown]
  - Inappropriate schedule of product administration [Unknown]

NARRATIVE: CASE EVENT DATE: 20220506
